FAERS Safety Report 12872936 (Version 2)
Quarter: 2016Q4

REPORT INFORMATION
  Report Type: Report from Study
  Country: US (occurrence: US)
  Receive Date: 20161021
  Receipt Date: 20161028
  Transmission Date: 20170207
  Serious: Yes (Other)
  Sender: FDA-Public Use
  Company Number: US-ROCHE-1843805

PATIENT
  Sex: Female

DRUGS (2)
  1. NUTROPIN AQ [Suspect]
     Active Substance: SOMATROPIN
     Indication: BODY HEIGHT BELOW NORMAL
     Dosage: 5 MG/ML
     Route: 058
  2. NUTROPIN AQ [Suspect]
     Active Substance: SOMATROPIN
     Indication: PRODUCT USE ISSUE

REACTIONS (5)
  - Obsessive thoughts [Unknown]
  - Illness anxiety disorder [Unknown]
  - Anxiety [Unknown]
  - Generalised anxiety disorder [Unknown]
  - Hypersensitivity [Unknown]
